FAERS Safety Report 5940807-2 (Version None)
Quarter: 2008Q4

REPORT INFORMATION
  Report Type: 
  Country: None (occurrence: None)
  Receive Date: 20081104
  Receipt Date: 20081023
  Transmission Date: 20090506
  Serious: Yes (Hospitalization)
  Sender: FDA-Public Use
  Company Number: JP-JNJFOC-20081006222

PATIENT
  Age: 8 Decade
  Sex: Male

DRUGS (2)
  1. FENTANYL CITRATE [Suspect]
     Route: 062
  2. FENTANYL CITRATE [Suspect]
     Indication: CANCER PAIN
     Route: 062

REACTIONS (3)
  - DELIRIUM [None]
  - FALL [None]
  - PNEUMONIA ASPIRATION [None]
